FAERS Safety Report 5289221-6 (Version None)
Quarter: 2007Q1

REPORT INFORMATION
  Report Type: 
  Country: None (occurrence: None)
  Receive Date: 20070124
  Receipt Date: 20060321
  Transmission Date: 20070707
  Serious: Yes (Hospitalization, Other)
  Sender: FDA-Public Use
  Company Number: HQWYE469222MAR06

PATIENT
  Age: 86 Year
  Sex: Female
  Weight: 71.73 kg

DRUGS (1)
  1. CORDARONE [Suspect]
     Indication: ATRIAL FLUTTER
     Dosage: ORAL
     Route: 048
     Dates: start: 20060301, end: 20060320

REACTIONS (1)
  - TREMOR [None]
